APPROVED DRUG PRODUCT: ISOPROTERENOL HYDROCHLORIDE
Active Ingredient: ISOPROTERENOL HYDROCHLORIDE
Strength: 0.2MG/ML
Dosage Form/Route: INJECTABLE;INJECTION
Application: A083486 | Product #001
Applicant: BAXTER HEALTHCARE CORP ANESTHESIA AND CRITICAL CARE
Approved: Approved Prior to Jan 1, 1982 | RLD: No | RS: No | Type: DISCN